FAERS Safety Report 5861440-7 (Version None)
Quarter: 2008Q3

REPORT INFORMATION
  Report Type: 
  Country: None (occurrence: None)
  Receive Date: 20080826
  Receipt Date: 20080812
  Transmission Date: 20090109
  Serious: Yes (Hospitalization)
  Sender: FDA-Public Use
  Company Number: 2008AL006292

PATIENT
  Sex: Female

DRUGS (1)
  1. DIGOXIN [Suspect]
     Indication: MYOCARDIAL INFARCTION
     Dosage: 0.125MG, PO
     Route: 048

REACTIONS (3)
  - EXTRASYSTOLES [None]
  - ILL-DEFINED DISORDER [None]
  - NEOPLASM MALIGNANT [None]
